FAERS Safety Report 13703039 (Version 1)
Quarter: 2017Q2

REPORT INFORMATION
  Report Type: Report from Study
  Country: US (occurrence: US)
  Receive Date: 20170629
  Receipt Date: 20170629
  Transmission Date: 20170830
  Serious: Yes (Other)
  Sender: FDA-Public Use
  Company Number: US-SAOL THERAPEUTICS-0701135354

PATIENT
  Age: 69 Year
  Sex: Female

DRUGS (8)
  1. COMPOUNDED BACLOFEN [Suspect]
     Active Substance: BACLOFEN
     Indication: PAIN
     Dosage: 64.98 ?G, \DAY
     Route: 037
     Dates: start: 20150812, end: 20151029
  2. COMPOUNDED BACLOFEN [Suspect]
     Active Substance: BACLOFEN
     Dosage: 133.34 ?G, \DAY
     Route: 037
     Dates: start: 20151029
  3. DILAUDID [Suspect]
     Active Substance: HYDROMORPHONE HYDROCHLORIDE
     Dosage: 7.009 MG, \DAY
     Route: 037
     Dates: start: 20151029
  4. COMPOUNDED BACLOFEN [Suspect]
     Active Substance: BACLOFEN
     Dosage: 70.09 ?G, \DAY
     Route: 037
     Dates: start: 20151029
  5. DILAUDID [Suspect]
     Active Substance: HYDROMORPHONE HYDROCHLORIDE
     Dosage: 6.498 MG, \DAY
     Route: 037
     Dates: start: 20150812, end: 20151029
  6. DILAUDID [Suspect]
     Active Substance: HYDROMORPHONE HYDROCHLORIDE
     Dosage: 12.829 MG, \DAY
     Route: 037
     Dates: start: 20150812, end: 20151029
  7. COMPOUNDED BACLOFEN [Suspect]
     Active Substance: BACLOFEN
     Dosage: 128.29 ?G, \DAY
     Route: 037
     Dates: start: 20150812, end: 20151029
  8. DILAUDID [Suspect]
     Active Substance: HYDROMORPHONE HYDROCHLORIDE
     Dosage: 13.334 MG, \DAY
     Route: 037
     Dates: start: 20151029

REACTIONS (8)
  - Pain [Unknown]
  - Medical device site fibrosis [Unknown]
  - Malaise [Unknown]
  - Tremor [Unknown]
  - Off label use [Unknown]
  - Nausea [Unknown]
  - Drug withdrawal syndrome [Unknown]
  - Headache [Unknown]

NARRATIVE: CASE EVENT DATE: 20151027
